FAERS Safety Report 15215550 (Version 2)
Quarter: 2018Q3

REPORT INFORMATION
  Report Type: Spontaneous
  Country: DE (occurrence: DE)
  Receive Date: 20180730
  Receipt Date: 20180905
  Transmission Date: 20181010
  Serious: Yes (Hospitalization)
  Sender: FDA-Public Use
  Company Number: DE-BAYER-2018-134688

PATIENT
  Age: 68 Year
  Sex: Male

DRUGS (5)
  1. STIVARGA [Suspect]
     Active Substance: REGORAFENIB
     Indication: GLIOBLASTOMA
     Dosage: 160 MG/D
     Dates: start: 20180430
  2. STIVARGA [Suspect]
     Active Substance: REGORAFENIB
     Indication: GLIOBLASTOMA
     Dosage: 120 MG/D
     Dates: start: 20180531
  3. STIVARGA [Suspect]
     Active Substance: REGORAFENIB
     Indication: GLIOBLASTOMA
     Dosage: 120 MG/D
     Dates: start: 20180628
  4. STIVARGA [Suspect]
     Active Substance: REGORAFENIB
     Indication: GLIOBLASTOMA
     Dosage: 40 MG, QID, 3 WEEKS, 1 WEEK BREAK
     Route: 048
     Dates: start: 20180504
  5. STIVARGA [Suspect]
     Active Substance: REGORAFENIB
     Indication: GLIOBLASTOMA
     Dosage: 40 MG, TID, 3 WEEKS, THEN 1 WEEK BREAK
     Route: 048
     Dates: end: 20180709

REACTIONS (3)
  - Off label use [None]
  - Meningitis aseptic [Recovering/Resolving]
  - Product use in unapproved indication [None]

NARRATIVE: CASE EVENT DATE: 20180709
